FAERS Safety Report 8479034-6 (Version None)
Quarter: 2012Q2

REPORT INFORMATION
  Report Type: 
  Country: None (occurrence: None)
  Receive Date: 20120629
  Receipt Date: 20120626
  Transmission Date: 20120825
  Serious: Yes (Hospitalization)
  Sender: FDA-Public Use
  Company Number: CH-MERCK-1206USA04630

PATIENT
  Age: 85 Year
  Sex: Male

DRUGS (9)
  1. TORSEMIDE [Suspect]
     Indication: ESSENTIAL HYPERTENSION
     Route: 048
     Dates: end: 20120501
  2. MARCUMAR [Concomitant]
     Route: 048
     Dates: end: 20120501
  3. JANUMET [Suspect]
     Indication: TYPE 2 DIABETES MELLITUS
     Route: 048
     Dates: end: 20120511
  4. ATORVASTATIN CALCIUM [Suspect]
     Indication: HYPERLIPIDAEMIA
     Route: 048
  5. DIGOXIN [Suspect]
     Indication: MYOCARDIAL ISCHAEMIA
     Route: 048
     Dates: end: 20120511
  6. ASPIRIN [Concomitant]
     Route: 048
  7. INSPRA [Concomitant]
     Route: 048
  8. HYZAAR [Suspect]
     Indication: ESSENTIAL HYPERTENSION
     Route: 048
     Dates: end: 20120511
  9. CONCOR [Concomitant]
     Route: 048

REACTIONS (8)
  - BLOOD LACTIC ACID INCREASED [None]
  - NAUSEA [None]
  - CONFUSIONAL STATE [None]
  - HALLUCINATION [None]
  - DIARRHOEA [None]
  - RENAL FAILURE CHRONIC [None]
  - DRUG LEVEL INCREASED [None]
  - PERSONALITY CHANGE [None]
